FAERS Safety Report 18464333 (Version 3)
Quarter: 2021Q3

REPORT INFORMATION
  Report Type: Report from Study
  Country: BR (occurrence: BR)
  Receive Date: 20201104
  Receipt Date: 20210722
  Transmission Date: 20211014
  Serious: Yes (Hospitalization, Other)
  Sender: FDA-Public Use
  Company Number: BR-TAKEDA-2020TUS047524

PATIENT
  Age: 11 Year
  Sex: Male
  Weight: 40 kg

DRUGS (4)
  1. LORATADINE. [Concomitant]
     Active Substance: LORATADINE
     Indication: HYPERSENSITIVITY
     Dosage: 5 MILLILITER, FOR 2 DAYS
     Route: 065
  2. HEMO?8R [Suspect]
     Active Substance: ANTIHEMOPHILIC FACTOR, HUMAN RECOMBINANT
     Indication: FACTOR VIII DEFICIENCY
     Dosage: 1000 INTERNATIONAL UNIT, 3/WEEK
     Route: 042
     Dates: start: 20111125
  3. HEMO?8R [Suspect]
     Active Substance: ANTIHEMOPHILIC FACTOR, HUMAN RECOMBINANT
     Dosage: 1000 INTERNATIONAL UNIT, 3/WEEK
     Route: 042
  4. HEMO?8R [Suspect]
     Active Substance: ANTIHEMOPHILIC FACTOR, HUMAN RECOMBINANT
     Dosage: 1000 INTERNATIONAL UNIT, 3/WEEK
     Route: 042
     Dates: start: 2011

REACTIONS (23)
  - Pneumonia [Recovered/Resolved]
  - Pain in extremity [Unknown]
  - Weight increased [Recovered/Resolved]
  - Inappropriate schedule of product administration [Unknown]
  - Eye swelling [Not Recovered/Not Resolved]
  - Swelling [Unknown]
  - Swelling face [Unknown]
  - Lip swelling [Unknown]
  - Gingival bleeding [Unknown]
  - Back pain [Unknown]
  - Fall [Unknown]
  - Hunger [Unknown]
  - Trigger finger [Unknown]
  - Tooth extraction [Unknown]
  - Overweight [Unknown]
  - Discomfort [Unknown]
  - Weight abnormal [Unknown]
  - Pain [Unknown]
  - Hypersensitivity [Recovered/Resolved]
  - Mood altered [Unknown]
  - Weight decreased [Unknown]
  - Epistaxis [Unknown]
  - Coagulopathy [Recovered/Resolved]

NARRATIVE: CASE EVENT DATE: 202102
